FAERS Safety Report 8165528-X (Version None)
Quarter: 2012Q1

REPORT INFORMATION
  Report Type: 
  Country: None (occurrence: None)
  Receive Date: 20120227
  Receipt Date: 20120216
  Transmission Date: 20120608
  Serious: Yes (Hospitalization)
  Sender: FDA-Public Use
  Company Number: US-JNJFOC-20120210189

PATIENT
  Sex: Male
  Weight: 48.5 kg

DRUGS (9)
  1. VITAMIN D W/ CALCIUM [Concomitant]
  2. FOLIC ACID [Concomitant]
  3. REMICADE [Suspect]
     Indication: CROHN'S DISEASE
     Route: 042
     Dates: start: 20050501
  4. HUMIRA [Concomitant]
     Dates: start: 20080401
  5. FISH OIL [Concomitant]
  6. MESALAMINE [Concomitant]
     Route: 048
  7. GROWTH HORMONE [Concomitant]
  8. MECLIZINE HYDROCHLORIDE [Concomitant]
  9. ANTIBIOTICS [Concomitant]
     Indication: INFLAMMATORY BOWEL DISEASE

REACTIONS (4)
  - CROHN'S DISEASE [None]
  - CONDITION AGGRAVATED [None]
  - DECREASED APPETITE [None]
  - WEIGHT DECREASED [None]
